FAERS Safety Report 17081546 (Version 1)
Quarter: 2019Q4

REPORT INFORMATION
  Report Type: Spontaneous
  Country: US (occurrence: US)
  Receive Date: 20191127
  Receipt Date: 20191127
  Transmission Date: 20200122
  Serious: No
  Sender: FDA-Public Use
  Company Number: US-SLATE RUN PHARMACEUTICALS-SLTR-AE-19-115

PATIENT
  Age: 70 Year
  Sex: Male

DRUGS (1)
  1. 70436-029-80 VORICONAZOLE FOR INJECTION DRY VIAL 200 MG [Suspect]
     Active Substance: VORICONAZOLE
     Indication: BRONCHOPULMONARY ASPERGILLOSIS

REACTIONS (2)
  - Pulmonary embolism [Unknown]
  - Periostitis [Recovering/Resolving]
